FAERS Safety Report 20694399 (Version 1)
Quarter: 2022Q2

REPORT INFORMATION
  Report Type: Report from Study
  Country: CA (occurrence: CA)
  Receive Date: 20220411
  Receipt Date: 20220411
  Transmission Date: 20220721
  Serious: Yes (Other)
  Sender: FDA-Public Use
  Company Number: CA-JNJFOC-20220401149

PATIENT
  Age: 34 Year
  Sex: Male
  Weight: 87 kg

DRUGS (1)
  1. REMICADE [Suspect]
     Active Substance: INFLIXIMAB
     Indication: Colitis ulcerative
     Route: 042
     Dates: start: 2004

REACTIONS (4)
  - Haematochezia [Not Recovered/Not Resolved]
  - Pyrexia [Unknown]
  - Diarrhoea [Not Recovered/Not Resolved]
  - Bacterial test positive [Not Recovered/Not Resolved]

NARRATIVE: CASE EVENT DATE: 20220328
